FAERS Safety Report 17327563 (Version 4)
Quarter: 2021Q4

REPORT INFORMATION
  Report Type: Spontaneous
  Country: AT (occurrence: AT)
  Receive Date: 20200127
  Receipt Date: 20211014
  Transmission Date: 20220303
  Serious: Yes (Death, Other)
  Sender: FDA-Public Use
  Company Number: AT-002147023-NVSC2019AT034814

PATIENT
  Age: 21 Year
  Sex: Male

DRUGS (3)
  1. IMATINIB. [Suspect]
     Active Substance: IMATINIB MESYLATE
     Indication: Systemic mastocytosis
     Dosage: UNK
     Route: 065
  2. LEUSTATIN [Suspect]
     Active Substance: CLADRIBINE
     Indication: Systemic mastocytosis
     Dosage: 0.13 MILLIGRAM/KILOGRAM, QD (0.13 MG/KG, QD (2 HOUR INFUSION))
     Route: 042
  3. PREDNISOLONE [Concomitant]
     Active Substance: PREDNISOLONE
     Indication: Systemic mastocytosis
     Dosage: UNK

REACTIONS (6)
  - Systemic mastocytosis [Fatal]
  - Malignant neoplasm progression [Fatal]
  - Drug ineffective [Fatal]
  - Therapeutic response decreased [Unknown]
  - Thrombocytopenia [Unknown]
  - Neutropenia [Unknown]
